FAERS Safety Report 9578349 (Version 1)
Quarter: 2013Q4

REPORT INFORMATION
  Report Type: Spontaneous
  Country: US (occurrence: US)
  Receive Date: 20131001
  Receipt Date: 20131001
  Transmission Date: 20140711
  Serious: No
  Sender: FDA-Public Use
  Company Number: US-AMGEN-USASP2013012122

PATIENT
  Age: 56 Year
  Sex: Male
  Weight: 90.7 kg

DRUGS (8)
  1. ENBREL [Suspect]
     Indication: PSORIATIC ARTHROPATHY
     Dosage: 50 MG, QWK
     Route: 058
  2. OMEPRAZOLE [Concomitant]
     Dosage: 40 MG, UNK
  3. METFORMIN [Concomitant]
     Dosage: 500 MG, UNK
  4. MELOXICAM [Concomitant]
     Dosage: 15 MG, UNK
  5. MULTIVITAMINS, PLAIN [Concomitant]
     Dosage: UNK
  6. IMODIUM ADVANCED [Concomitant]
     Dosage: UNK
  7. NO DOZ [Concomitant]
     Dosage: 200 MG, UNK
  8. HYDROXYCHLOROQUINE [Concomitant]
     Dosage: 200 MG, UNK

REACTIONS (1)
  - Therapeutic response decreased [Unknown]
